FAERS Safety Report 23745563 (Version 1)
Quarter: 2024Q2

REPORT INFORMATION
  Report Type: Spontaneous
  Country: US (occurrence: US)
  Receive Date: 20240416
  Receipt Date: 20240416
  Transmission Date: 20240716
  Serious: No
  Sender: FDA-Public Use
  Company Number: US-ALKEM LABORATORIES LIMITED-US-ALKEM-2023-08113

PATIENT
  Age: 29 Year
  Sex: Female

DRUGS (1)
  1. ARIPIPRAZOLE [Suspect]
     Active Substance: ARIPIPRAZOLE
     Indication: Bipolar I disorder
     Dosage: 5 MILLIGRAM, QD (DAILY DOSE)
     Route: 048

REACTIONS (3)
  - Obsessive-compulsive disorder [Unknown]
  - Obsessive-compulsive symptom [Unknown]
  - Condition aggravated [Unknown]
